FAERS Safety Report 9031224 (Version 4)
Quarter: 2013Q2

REPORT INFORMATION
  Report Type: Spontaneous
  Country: DE (occurrence: DE)
  Receive Date: 20130123
  Receipt Date: 20130514
  Transmission Date: 20140414
  Serious: Yes (Hospitalization, Other)
  Sender: FDA-Public Use
  Company Number: DE-CELGENEUS-062-50794-13011968

PATIENT
  Age: 72 Year
  Sex: Female

DRUGS (6)
  1. VIDAZA [Suspect]
     Indication: BLAST CELL COUNT INCREASED
     Route: 058
     Dates: start: 20121018, end: 20121026
  2. VIDAZA [Suspect]
     Indication: ACUTE MYELOID LEUKAEMIA
     Route: 058
     Dates: start: 20121114, end: 20121122
  3. VIDAZA [Suspect]
     Route: 058
     Dates: start: 20121212, end: 20121219
  4. VIDAZA [Suspect]
     Route: 058
     Dates: start: 20130109
  5. ASS [Concomitant]
     Indication: PRODUCT USED FOR UNKNOWN INDICATION
     Dosage: 100 MILLIGRAM
     Route: 065
  6. L-THYROXINE [Concomitant]
     Indication: PRODUCT USED FOR UNKNOWN INDICATION
     Route: 065

REACTIONS (3)
  - Platelet count increased [Recovered/Resolved]
  - Peripheral vascular disorder [Recovered/Resolved]
  - Platelet count increased [Recovered/Resolved]
